FAERS Safety Report 4761324-1 (Version None)
Quarter: 2005Q3

REPORT INFORMATION
  Report Type: 
  Country: None (occurrence: None)
  Receive Date: 20050901
  Receipt Date: 20050210
  Transmission Date: 20060218
  Serious: Yes (Hospitalization)
  Sender: FDA-Public Use
  Company Number: 2005FR-00251

PATIENT
  Age: 74 Year
  Sex: Female

DRUGS (4)
  1. ASPIRIN [Suspect]
     Indication: MYOCARDIAL ISCHAEMIA
     Dosage: 75 MG OD ORAL
     Route: 048
     Dates: start: 19990101, end: 20050125
  2. ASPIRIN [Suspect]
     Indication: PROPHYLAXIS
     Dosage: 75 MG OD ORAL
     Route: 048
     Dates: start: 19990101, end: 20050125
  3. BENDROFLUMETHIAZIDE [Concomitant]
  4. OMEPRAZOLE [Concomitant]

REACTIONS (6)
  - DUODENAL ULCER [None]
  - GASTRODUODENAL ULCER [None]
  - HAEMATEMESIS [None]
  - HELICOBACTER INFECTION [None]
  - MELAENA [None]
  - PEPTIC ULCER [None]
